FAERS Safety Report 8823289 (Version 1)
Quarter: 2012Q4

REPORT INFORMATION
  Report Type: 
  Country: US (occurrence: US)
  Receive Date: 20121003
  Receipt Date: 20121003
  Transmission Date: 20130627
  Serious: Yes (Other)
  Sender: FDA-Public Use
  Company Number: US-ROCHE-1135545

PATIENT
  Sex: Female

DRUGS (15)
  1. VALIUM [Suspect]
     Indication: PAIN
     Route: 065
  2. HEPARIN [Concomitant]
     Dosage: 10 CC
     Route: 065
  3. LIDOCAINE [Concomitant]
     Dosage: 10 CC
     Route: 065
  4. FLEXERIL [Concomitant]
     Route: 065
  5. XANAX [Concomitant]
     Indication: ANXIETY
     Route: 065
  6. ZOFRAN [Concomitant]
     Indication: NAUSEA
     Route: 065
  7. PHENOBARBITAL [Concomitant]
     Indication: CONVULSION
     Dosage: one at bed time
     Route: 065
  8. BACTRIM DS [Concomitant]
     Indication: INFECTION
     Route: 065
  9. MACRODANTIN [Concomitant]
     Indication: INFECTION
     Dosage: two at bed time
     Route: 065
  10. URELLE [Concomitant]
     Route: 065
  11. DEPAKOTE [Concomitant]
     Indication: CONVULSION
     Dosage: two at bed time
     Route: 065
  12. VIVELLE [Concomitant]
     Dosage: one patch
     Route: 065
  13. LIDOCAINE JELLY [Concomitant]
     Indication: HYPOAESTHESIA
     Dosage: 2 percent
     Route: 065
  14. LUNESTA [Concomitant]
     Dosage: at bedtime
     Route: 065
  15. NORCO [Concomitant]
     Indication: PAIN
     Dosage: pill
     Route: 065

REACTIONS (1)
  - Cystitis interstitial [Unknown]
